FAERS Safety Report 16708732 (Version 1)
Quarter: 2019Q3

REPORT INFORMATION
  Report Type: Spontaneous
  Country: ZA (occurrence: ZA)
  Receive Date: 20190816
  Receipt Date: 20190816
  Transmission Date: 20191004
  Serious: Yes (Other)
  Sender: FDA-Public Use
  Company Number: ZA-CIPLA LTD.-2019ZA05700

PATIENT

DRUGS (1)
  1. EFAVIRENZ. [Suspect]
     Active Substance: EFAVIRENZ
     Indication: HIV INFECTION
     Dosage: UNK
     Route: 065

REACTIONS (5)
  - Attention deficit/hyperactivity disorder [Unknown]
  - Speech disorder [Unknown]
  - Fine motor delay [Unknown]
  - Generalised tonic-clonic seizure [Unknown]
  - Disturbance in attention [Unknown]
